FAERS Safety Report 10714932 (Version 1)
Quarter: 2015Q1

REPORT INFORMATION
  Report Type: Spontaneous
  Country: US (occurrence: US)
  Receive Date: 20150115
  Receipt Date: 20150115
  Transmission Date: 20150721
  Serious: No
  Sender: FDA-Public Use
  Company Number: US-GLAXOSMITHKLINE-US2014GSK047014

PATIENT
  Age: 86 Year
  Sex: Female

DRUGS (3)
  1. TAFLUPROST [Concomitant]
     Active Substance: TAFLUPROST
  2. ADVAIR DISKUS [Suspect]
     Active Substance: FLUTICASONE PROPIONATE\SALMETEROL XINAFOATE
     Indication: ASTHMA
     Dosage: 1 PUFF(S), QD
     Route: 055
     Dates: start: 20141009, end: 20141110
  3. TIMOPTIC [Concomitant]
     Active Substance: TIMOLOL MALEATE

REACTIONS (7)
  - Pain [Recovering/Resolving]
  - Oropharyngeal pain [Recovering/Resolving]
  - Epistaxis [Recovering/Resolving]
  - Chest pain [Recovering/Resolving]
  - Eye pain [Recovering/Resolving]
  - Asthenia [Recovering/Resolving]
  - Dysphonia [Recovering/Resolving]

NARRATIVE: CASE EVENT DATE: 20141023
